FAERS Safety Report 25456190 (Version 1)
Quarter: 2025Q2

REPORT INFORMATION
  Report Type: Spontaneous
  Country: US (occurrence: US)
  Receive Date: 20250619
  Receipt Date: 20250619
  Transmission Date: 20250716
  Serious: No
  Sender: TEVA
  Company Number: US-TEVA-VS-3342245

PATIENT
  Age: 55 Year
  Sex: Female

DRUGS (2)
  1. GABAPENTIN [Suspect]
     Active Substance: GABAPENTIN
     Indication: Product used for unknown indication
     Route: 065
  2. GABAPENTIN [Suspect]
     Active Substance: GABAPENTIN
     Indication: Product used for unknown indication
     Route: 065

REACTIONS (3)
  - Allergy to metals [Not Recovered/Not Resolved]
  - Adverse reaction [Not Recovered/Not Resolved]
  - Exposure to allergen [Unknown]
